FAERS Safety Report 21772862 (Version 1)
Quarter: 2022Q4

REPORT INFORMATION
  Report Type: Spontaneous
  Country: CN (occurrence: CN)
  Receive Date: 20221223
  Receipt Date: 20221223
  Transmission Date: 20230113
  Serious: Yes (Other)
  Sender: FDA-Public Use
  Company Number: CN-SA-2022SA517550

PATIENT
  Age: 56 Year
  Sex: Male
  Weight: 70 kg

DRUGS (2)
  1. OXALIPLATIN [Suspect]
     Active Substance: OXALIPLATIN
     Indication: Neoplasm
     Dosage: 250 MG, QD
     Route: 041
     Dates: start: 20221116, end: 20221117
  2. RALTITREXED [Concomitant]
     Active Substance: RALTITREXED
     Indication: Neoplasm
     Dosage: 5 MG, QD
     Route: 041
     Dates: start: 20221116, end: 20221117

REACTIONS (1)
  - Hepatic function abnormal [Unknown]

NARRATIVE: CASE EVENT DATE: 20221206
